FAERS Safety Report 9734711 (Version 1)
Quarter: 2013Q4

REPORT INFORMATION
  Report Type: Spontaneous
  Country: US (occurrence: US)
  Receive Date: 20131206
  Receipt Date: 20131206
  Transmission Date: 20140711
  Serious: Yes (Other)
  Sender: FDA-Public Use
  Company Number: US-JNJFOC-20131200466

PATIENT
  Age: 53 Year
  Sex: Male

DRUGS (1)
  1. INVOKANA [Suspect]
     Indication: PRODUCT USED FOR UNKNOWN INDICATION

REACTIONS (2)
  - Transient ischaemic attack [Recovered/Resolved]
  - Hypoaesthesia [Recovered/Resolved]
